FAERS Safety Report 8272819-0 (Version None)
Quarter: 2012Q2

REPORT INFORMATION
  Report Type: 
  Country: None (occurrence: None)
  Receive Date: 20120411
  Receipt Date: 20120328
  Transmission Date: 20120825
  Serious: No
  Sender: FDA-Public Use
  Company Number: US-BIOGENIDEC-2012BI007701

PATIENT
  Age: 54 Year
  Sex: Female

DRUGS (3)
  1. TYSABRI [Suspect]
     Indication: MULTIPLE SCLEROSIS
     Route: 042
     Dates: start: 20120207
  2. NABUMETONE [Concomitant]
     Indication: SPONDYLITIS
  3. MOBIC [Concomitant]
     Indication: SPONDYLITIS

REACTIONS (10)
  - MALAISE [None]
  - PHARYNGITIS STREPTOCOCCAL [None]
  - PAIN [None]
  - OROPHARYNGEAL PAIN [None]
  - BACK PAIN [None]
  - ARTHRALGIA [None]
  - FATIGUE [None]
  - SLUGGISHNESS [None]
  - DYSPNOEA [None]
  - PARAESTHESIA [None]
